FAERS Safety Report 13327970 (Version 2)
Quarter: 2017Q2

REPORT INFORMATION
  Report Type: Spontaneous
  Country: US (occurrence: US)
  Receive Date: 20170313
  Receipt Date: 20170409
  Transmission Date: 20170830
  Serious: No
  Sender: FDA-Public Use
  Company Number: US-TEVA-749051ACC

PATIENT
  Sex: Female

DRUGS (1)
  1. PARAGARD T 380A [Suspect]
     Active Substance: COPPER
     Indication: CONTRACEPTION
     Dosage: PLACED NINE YEARS AGO
     Dates: end: 20170307

REACTIONS (3)
  - Abdominal pain lower [Unknown]
  - Complication associated with device [Unknown]
  - Device breakage [Unknown]

NARRATIVE: CASE EVENT DATE: 20170307
